FAERS Safety Report 4966930-7 (Version None)
Quarter: 2006Q2

REPORT INFORMATION
  Report Type: 
  Country: None (occurrence: None)
  Receive Date: 20060407
  Receipt Date: 20060324
  Transmission Date: 20061013
  Serious: Yes (Hospitalization)
  Sender: FDA-Public Use
  Company Number: US-MERCK-0603USA04039

PATIENT
  Age: 12 Year
  Sex: Female
  Weight: 64 kg

DRUGS (9)
  1. SINGULAIR [Suspect]
     Indication: ASTHMA
     Route: 048
     Dates: start: 20060228, end: 20060301
  2. SINGULAIR [Suspect]
     Route: 048
     Dates: start: 20060303, end: 20060303
  3. PULMICORT [Concomitant]
     Indication: ASTHMA
     Route: 065
     Dates: start: 20060228, end: 20060301
  4. PULMICORT [Concomitant]
     Route: 065
     Dates: start: 20060303
  5. MIRAPEX [Concomitant]
     Route: 065
  6. WELLBUTRIN [Concomitant]
     Route: 065
  7. METFORMIN [Concomitant]
     Route: 065
  8. SUDAL [Concomitant]
     Indication: ASTHMA
     Route: 065
     Dates: start: 20060228
  9. STRATTERA [Concomitant]
     Route: 065

REACTIONS (2)
  - AFFECTIVE DISORDER [None]
  - AGGRESSION [None]
